FAERS Safety Report 5853740-1 (Version None)
Quarter: 2008Q3

REPORT INFORMATION
  Report Type: 
  Country: None (occurrence: None)
  Receive Date: 20080822
  Receipt Date: 20080814
  Transmission Date: 20090109
  Serious: Yes (Hospitalization, Other)
  Sender: FDA-Public Use
  Company Number: US-AMGEN-QUU299021

PATIENT
  Sex: Female
  Weight: 111.7 kg

DRUGS (6)
  1. ENBREL [Suspect]
     Indication: RHEUMATOID ARTHRITIS
     Route: 058
     Dates: start: 20030101
  2. LEXAPRO [Concomitant]
     Route: 048
  3. PRILOSEC [Concomitant]
     Route: 048
  4. TYLENOL [Concomitant]
  5. MULTI-VITAMINS [Concomitant]
     Route: 048
  6. GLYCERIN [Concomitant]
     Route: 054

REACTIONS (9)
  - CERVICAL VERTEBRAL FRACTURE [None]
  - CONTUSION [None]
  - DEPRESSION [None]
  - DIVERTICULUM [None]
  - GOITRE [None]
  - NEUROGENIC BOWEL [None]
  - QUADRIPLEGIA [None]
  - THYROID CANCER [None]
  - VENA CAVA FILTER INSERTION [None]
